FAERS Safety Report 16898864 (Version 6)
Quarter: 2020Q2

REPORT INFORMATION
  Report Type: Spontaneous
  Country: US (occurrence: US)
  Receive Date: 20191009
  Receipt Date: 20200528
  Transmission Date: 20200713
  Serious: No
  Sender: FDA-Public Use
  Company Number: US-PFIZER INC-2019432464

PATIENT
  Age: 13 Year
  Sex: Female

DRUGS (3)
  1. XELJANZ XR [Suspect]
     Active Substance: TOFACITINIB CITRATE
     Dosage: 11 MG, UNK
     Dates: start: 201907, end: 2019
  2. XELJANZ XR [Suspect]
     Active Substance: TOFACITINIB CITRATE
     Dosage: 11 MG, UNK
     Dates: start: 2019, end: 2019
  3. XELJANZ XR [Suspect]
     Active Substance: TOFACITINIB CITRATE
     Dosage: 11 MG, UNK
     Dates: start: 201907

REACTIONS (13)
  - Off label use [Unknown]
  - Nasopharyngitis [Unknown]
  - Cough [Unknown]
  - Product use issue [Unknown]
  - Rhinorrhoea [Unknown]
  - Malaise [Unknown]
  - Arthralgia [Unknown]
  - Musculoskeletal stiffness [Unknown]
  - Sinusitis [Unknown]
  - Head injury [Unknown]
  - Ear infection [Unknown]
  - Oropharyngeal pain [Unknown]
  - Streptococcal infection [Unknown]

NARRATIVE: CASE EVENT DATE: 201907
